FAERS Safety Report 9525997 (Version 1)
Quarter: 2013Q3

REPORT INFORMATION
  Report Type: Spontaneous
  Country: US (occurrence: None)
  Receive Date: 20130913
  Receipt Date: 20130913
  Transmission Date: 20140515
  Serious: Yes (Hospitalization)
  Sender: FDA-Public Use
  Company Number: None

PATIENT
  Age: 73 Year
  Sex: Male
  Weight: 93.4 kg

DRUGS (3)
  1. BEVACIZUMAB (RHUMAB VEGF) (704865) [Suspect]
  2. IRINOTECAN [Suspect]
  3. OXALIPLATIN (ELOXATIN) [Concomitant]

REACTIONS (4)
  - Asthenia [None]
  - Pyrexia [None]
  - Wound infection [None]
  - Neutropenia [None]
